FAERS Safety Report 7608731-7 (Version None)
Quarter: 2011Q3

REPORT INFORMATION
  Report Type: 
  Country: None (occurrence: None)
  Receive Date: 20110713
  Receipt Date: 20110713
  Transmission Date: 20111222
  Serious: No
  Sender: FDA-Public Use
  Company Number: None

PATIENT
  Age: 37 Year
  Sex: Female
  Weight: 111.1313 kg

DRUGS (2)
  1. MERIDIA [Suspect]
     Indication: OBESITY
     Dates: start: 20010301, end: 20010601
  2. MERIDIA [Suspect]
     Indication: WEIGHT LOSS POOR
     Dates: start: 20010301, end: 20010601

REACTIONS (3)
  - HYPERTENSION [None]
  - DIZZINESS [None]
  - HEART RATE INCREASED [None]
